FAERS Safety Report 12204046 (Version 2)
Quarter: 2016Q2

REPORT INFORMATION
  Report Type: Spontaneous
  Country: US (occurrence: US)
  Receive Date: 20160323
  Receipt Date: 20160412
  Transmission Date: 20160815
  Serious: No
  Sender: FDA-Public Use
  Company Number: US-PFIZER INC-2016136390

PATIENT
  Age: 82 Year
  Sex: Male
  Weight: 90.72 kg

DRUGS (6)
  1. FIBER TAB [Concomitant]
     Indication: SUPPLEMENTATION THERAPY
     Dosage: 2 TABS TWICE A DAY
     Dates: start: 2010
  2. LYRICA [Suspect]
     Active Substance: PREGABALIN
     Indication: NEUROPATHY PERIPHERAL
     Dosage: 150 MG, 2X/DAY
     Dates: start: 2012
  3. LOPID [Concomitant]
     Active Substance: GEMFIBROZIL
     Indication: BLOOD CHOLESTEROL ABNORMAL
     Dosage: 600 MG, 2X/DAY
     Dates: start: 2010
  4. LYRICA [Suspect]
     Active Substance: PREGABALIN
     Dosage: 150MG PER DAY
     Dates: start: 2013, end: 201504
  5. LYRICA [Suspect]
     Active Substance: PREGABALIN
     Dosage: UNK
     Dates: start: 201602
  6. ALLOPURINOL. [Concomitant]
     Active Substance: ALLOPURINOL
     Dosage: 100 MG, UNK
     Dates: start: 2012

REACTIONS (10)
  - Eye irritation [Recovering/Resolving]
  - Pre-existing condition improved [Recovered/Resolved]
  - Eye pain [Recovering/Resolving]
  - Facial pain [Recovering/Resolving]
  - Pruritus [Recovering/Resolving]
  - Burning sensation [Recovering/Resolving]
  - Therapeutic response unexpected [Recovered/Resolved]
  - Hypersensitivity [Recovering/Resolving]
  - Intentional product misuse [Unknown]
  - Eye pruritus [Recovering/Resolving]

NARRATIVE: CASE EVENT DATE: 201504
